FAERS Safety Report 25737304 (Version 2)
Quarter: 2025Q4

REPORT INFORMATION
  Report Type: Spontaneous
  Country: US (occurrence: US)
  Receive Date: 20250828
  Receipt Date: 20251113
  Transmission Date: 20260117
  Serious: No
  Sender: MYLAN
  Company Number: US-MYLANLABS-2024M1022741

PATIENT
  Sex: Female
  Weight: 63.96 kg

DRUGS (16)
  1. ESTRADIOL [Suspect]
     Active Substance: ESTRADIOL
     Indication: Vulvovaginal dryness
     Dosage: UNK
     Route: 067
  2. ESTRADIOL [Suspect]
     Active Substance: ESTRADIOL
     Indication: Atrophy
     Dosage: UNK
  3. ESTRADIOL [Suspect]
     Active Substance: ESTRADIOL
     Dosage: UNK
  4. ESTRADIOL [Suspect]
     Active Substance: ESTRADIOL
     Dosage: UNK
     Route: 067
  5. ESTRADIOL [Suspect]
     Active Substance: ESTRADIOL
     Dosage: UNK
     Route: 067
  6. ESTRADIOL [Suspect]
     Active Substance: ESTRADIOL
     Dosage: UNK
  7. ESTRADIOL [Suspect]
     Active Substance: ESTRADIOL
     Dosage: UNK
  8. ESTRADIOL [Suspect]
     Active Substance: ESTRADIOL
     Dosage: UNK
     Route: 067
  9. ESTRADIOL [Suspect]
     Active Substance: ESTRADIOL
     Dosage: UNK
     Route: 067
  10. ESTRADIOL [Suspect]
     Active Substance: ESTRADIOL
     Dosage: UNK
  11. ESTRADIOL [Suspect]
     Active Substance: ESTRADIOL
     Dosage: UNK
  12. ESTRADIOL [Suspect]
     Active Substance: ESTRADIOL
     Dosage: UNK
     Route: 067
  13. ESTRADIOL [Suspect]
     Active Substance: ESTRADIOL
     Dosage: UNK, 3XW (3 TIMES WEEKLY, LITTLE LESS THAN 1 GRAM)
     Route: 067
     Dates: start: 20250916
  14. ESTRADIOL [Suspect]
     Active Substance: ESTRADIOL
     Dosage: UNK, 3XW (3 TIMES WEEKLY, LITTLE LESS THAN 1 GRAM)
     Dates: start: 20250916
  15. ESTRADIOL [Suspect]
     Active Substance: ESTRADIOL
     Dosage: UNK, 3XW (3 TIMES WEEKLY, LITTLE LESS THAN 1 GRAM)
     Dates: start: 20250916
  16. ESTRADIOL [Suspect]
     Active Substance: ESTRADIOL
     Dosage: UNK, 3XW (3 TIMES WEEKLY, LITTLE LESS THAN 1 GRAM)
     Route: 067
     Dates: start: 20250916

REACTIONS (3)
  - Inappropriate schedule of product administration [Unknown]
  - Product delivery mechanism issue [Unknown]
  - Product packaging quantity issue [Unknown]

NARRATIVE: CASE EVENT DATE: 20250101
